FAERS Safety Report 7575084-2 (Version None)
Quarter: 2011Q2

REPORT INFORMATION
  Report Type: 
  Country: None (occurrence: None)
  Receive Date: 20110627
  Receipt Date: 20110311
  Transmission Date: 20111010
  Serious: Yes (Hospitalization)
  Sender: FDA-Public Use
  Company Number: JP-ASTRAZENECA-2011SE12770

PATIENT
  Age: 25489 Day
  Sex: Male

DRUGS (9)
  1. NEOPAREN NO2 [Concomitant]
     Route: 065
     Dates: start: 20100701
  2. CLINDAMYCIN [Suspect]
     Route: 065
     Dates: start: 20100622, end: 20100704
  3. NITRAZEPAM [Concomitant]
     Route: 065
     Dates: start: 20100623
  4. FAMOTIDINE [Concomitant]
     Route: 065
     Dates: start: 20100621
  5. PREDNISOLONE [Concomitant]
     Route: 065
     Dates: start: 20100628
  6. MEROPENEM [Suspect]
     Indication: PNEUMONIA
     Route: 042
     Dates: start: 20100622, end: 20100704
  7. DOBUTREX [Concomitant]
     Route: 065
     Dates: start: 20100623, end: 20100702
  8. LASIX [Concomitant]
     Route: 065
     Dates: start: 20100629, end: 20100704
  9. ALBUMIN (HUMAN) [Concomitant]
     Route: 065
     Dates: start: 20100702, end: 20100704

REACTIONS (2)
  - PNEUMONIA [None]
  - DRUG ERUPTION [None]
